FAERS Safety Report 10587768 (Version 3)
Quarter: 2014Q4

REPORT INFORMATION
  Report Type: Spontaneous
  Country: US (occurrence: US)
  Receive Date: 20141117
  Receipt Date: 20141231
  Transmission Date: 20150529
  Serious: No
  Sender: FDA-Public Use
  Company Number: US-PFIZER INC-2014314516

PATIENT
  Age: 63 Year
  Sex: Male

DRUGS (3)
  1. AMIODARONE HCL [Suspect]
     Active Substance: AMIODARONE HYDROCHLORIDE
     Dosage: 1 MG, 1X/DAY
  2. CARDURA [Suspect]
     Active Substance: DOXAZOSIN MESYLATE
     Dosage: 1 MG, 1X/DAY
  3. SPIRONOLACTONE. [Suspect]
     Active Substance: SPIRONOLACTONE
     Dosage: 1 MG, 1X/DAY

REACTIONS (1)
  - Drug hypersensitivity [Unknown]
